FAERS Safety Report 9861660 (Version 1)
Quarter: 2014Q1

REPORT INFORMATION
  Report Type: Spontaneous
  Country: US (occurrence: None)
  Receive Date: 20140131
  Receipt Date: 20140131
  Transmission Date: 20141002
  Serious: Yes (Hospitalization)
  Sender: FDA-Public Use
  Company Number: None

PATIENT
  Age: 67 Year
  Sex: Female
  Weight: 92.53 kg

DRUGS (10)
  1. ACCUPRIL [Suspect]
     Indication: BLOOD PRESSURE
     Route: 048
     Dates: start: 20131015, end: 20131112
  2. METFORMIN [Concomitant]
  3. LISINOPRIL [Concomitant]
  4. GABAPENTIN [Concomitant]
  5. MORPHINE [Concomitant]
  6. HYDROCODONE [Concomitant]
  7. LANTUS [Concomitant]
  8. CHLORTHALIDONE [Concomitant]
  9. PRAVASTATIN [Concomitant]
  10. AMLODIPINE [Concomitant]

REACTIONS (9)
  - Hypoaesthesia [None]
  - Heart rate increased [None]
  - Nausea [None]
  - Dyspnoea [None]
  - Neck pain [None]
  - Chest pain [None]
  - Back pain [None]
  - Feeling abnormal [None]
  - Muscular weakness [None]
